FAERS Safety Report 5129014-3 (Version None)
Quarter: 2006Q4

REPORT INFORMATION
  Report Type: 
  Country: None (occurrence: None)
  Receive Date: 20061017
  Receipt Date: 20060711
  Transmission Date: 20070319
  Serious: Yes (Hospitalization)
  Sender: FDA-Public Use
  Company Number: US-BOEHRINGER INGELHEIM PHARMACEUTICALS, INC.-2006-BP-08013BP

PATIENT
  Sex: Female

DRUGS (3)
  1. MIRAPEX [Suspect]
     Indication: PARKINSON'S DISEASE
     Route: 048
     Dates: start: 20060301, end: 20060601
  2. AMANTADINE HCL [Concomitant]
     Dates: start: 20060301
  3. NORVASC [Concomitant]
     Indication: BLOOD PRESSURE
     Dates: end: 20060601

REACTIONS (5)
  - DIZZINESS [None]
  - DRUG INEFFECTIVE [None]
  - ORTHOSTATIC HYPERTENSION [None]
  - VERTIGO [None]
  - VISUAL DISTURBANCE [None]
